FAERS Safety Report 13092407 (Version 1)
Quarter: 2017Q1

REPORT INFORMATION
  Report Type: Spontaneous
  Country: US (occurrence: US)
  Receive Date: 20170105
  Receipt Date: 20170105
  Transmission Date: 20170428
  Serious: Yes (Hospitalization)
  Sender: FDA-Public Use
  Company Number: None

PATIENT
  Age: 9 Year
  Sex: Male
  Weight: 26.6 kg

DRUGS (1)
  1. ONCASPAR [Suspect]
     Active Substance: PEGASPARGASE
     Dates: end: 20161228

REACTIONS (5)
  - Visual impairment [None]
  - Infusion related reaction [None]
  - Oxygen saturation decreased [None]
  - Feeling hot [None]
  - Blood pressure decreased [None]

NARRATIVE: CASE EVENT DATE: 20161228
